FAERS Safety Report 22211738 (Version 1)
Quarter: 2023Q2

REPORT INFORMATION
  Report Type: Report from Study
  Country: IN (occurrence: IN)
  Receive Date: 20230414
  Receipt Date: 20230414
  Transmission Date: 20230721
  Serious: Yes (Other)
  Sender: FDA-Public Use
  Company Number: IN-002147023-NVSC2023IN078791

PATIENT
  Age: 51 Year
  Sex: Female

DRUGS (2)
  1. TASIGNA [Suspect]
     Active Substance: NILOTINIB
     Indication: Chronic myeloid leukaemia
     Dosage: 400 MG, BID
     Route: 048
     Dates: start: 20221119, end: 20230312
  2. TASIGNA [Suspect]
     Active Substance: NILOTINIB
     Dosage: 400 MG, BID
     Route: 065
     Dates: start: 20230408

REACTIONS (13)
  - Neuropathy peripheral [Unknown]
  - Nephropathy toxic [Unknown]
  - Osteonecrosis [Unknown]
  - Hepatotoxicity [Unknown]
  - Neutropenia [Unknown]
  - Osteopenia [Unknown]
  - Myopathy [Unknown]
  - Pain in jaw [Not Recovered/Not Resolved]
  - Constipation [Recovering/Resolving]
  - Vomiting [Recovering/Resolving]
  - Full blood count decreased [Unknown]
  - Platelet count decreased [Unknown]
  - Gastritis [Unknown]

NARRATIVE: CASE EVENT DATE: 20230312
